FAERS Safety Report 5785985-3 (Version None)
Quarter: 2008Q2

REPORT INFORMATION
  Report Type: 
  Country: None (occurrence: None)
  Receive Date: 20080620
  Receipt Date: 20080620
  Transmission Date: 20081010
  Serious: Yes (Other)
  Sender: FDA-Public Use
  Company Number: None

PATIENT
  Age: 71 Year
  Sex: Female
  Weight: 65.7716 kg

DRUGS (1)
  1. FOSAMAX [Suspect]
     Indication: OSTEOPOROSIS
     Dosage: ONCE A WEEK PO
     Route: 048
     Dates: start: 20010725, end: 20020515

REACTIONS (4)
  - DENTAL CARIES [None]
  - DYSPHAGIA [None]
  - FEAR [None]
  - LOOSE TOOTH [None]
